FAERS Safety Report 8355930-5 (Version None)
Quarter: 2012Q2

REPORT INFORMATION
  Report Type: 
  Country: None (occurrence: None)
  Receive Date: 20120514
  Receipt Date: 20120508
  Transmission Date: 20120825
  Serious: Yes (Hospitalization)
  Sender: FDA-Public Use
  Company Number: BR-US-EMD SERONO, INC.-7105424

PATIENT
  Sex: Female

DRUGS (5)
  1. CORTICOSTEROID [Suspect]
     Indication: HYPOAESTHESIA
  2. IBUPROFEN (ADVIL) [Concomitant]
     Indication: PRODUCT USED FOR UNKNOWN INDICATION
  3. REBIF [Suspect]
     Indication: RELAPSING-REMITTING MULTIPLE SCLEROSIS
     Dates: start: 20110803, end: 20120104
  4. YASMIN [Concomitant]
     Indication: PRODUCT USED FOR UNKNOWN INDICATION
  5. REBIF [Suspect]
     Dates: start: 20120104

REACTIONS (5)
  - WHITE BLOOD CELL COUNT ABNORMAL [None]
  - VIITH NERVE PARALYSIS [None]
  - ALOPECIA [None]
  - HYPOAESTHESIA [None]
  - CENTRAL NERVOUS SYSTEM LESION [None]
